FAERS Safety Report 5972673-3 (Version None)
Quarter: 2008Q4

REPORT INFORMATION
  Report Type: 
  Country: None (occurrence: None)
  Receive Date: 20081201
  Receipt Date: 20081126
  Transmission Date: 20090506
  Serious: Yes (Death)
  Sender: FDA-Public Use
  Company Number: JP-ABBOTT-08P-087-0489956-00

PATIENT
  Sex: Female

DRUGS (2)
  1. SEVOFLURANE [Suspect]
     Indication: ANAESTHESIA
  2. SEVOFLURANE [Suspect]
     Indication: SPINAL OPERATION

REACTIONS (2)
  - HAEMORRHAGIC DIATHESIS [None]
  - LIVER DISORDER [None]
